FAERS Safety Report 5269558-7 (Version None)
Quarter: 2007Q1

REPORT INFORMATION
  Report Type: 
  Country: None (occurrence: None)
  Receive Date: 20070320
  Receipt Date: 20070312
  Transmission Date: 20070707
  Serious: Yes (Hospitalization, Other)
  Sender: FDA-Public Use
  Company Number: US-AVENTIS-200612457US

PATIENT
  Age: 37 Year
  Sex: Male

DRUGS (3)
  1. KETEK [Suspect]
     Indication: BRONCHITIS
     Dosage: DOSE: UNK
     Route: 048
     Dates: start: 20060202, end: 20060201
  2. ZYRTEC [Concomitant]
     Dosage: DOSE: UNK
  3. LEVSIN [Concomitant]
     Indication: GASTROINTESTINAL PAIN
     Dosage: DOSE QUANTITY: 1

REACTIONS (24)
  - ABDOMINAL DISTENSION [None]
  - ABDOMINAL PAIN UPPER [None]
  - ALANINE AMINOTRANSFERASE INCREASED [None]
  - ASCITES [None]
  - ASPARTATE AMINOTRANSFERASE INCREASED [None]
  - ASTHENIA [None]
  - BLOOD BILIRUBIN INCREASED [None]
  - BLOOD GLUCOSE INCREASED [None]
  - CONSTIPATION [None]
  - FATIGUE [None]
  - GALLBLADDER OEDEMA [None]
  - HAEMATOCRIT ABNORMAL [None]
  - HAEMOGLOBIN ABNORMAL [None]
  - HEPATIC FAILURE [None]
  - HEPATITIS [None]
  - HEPATOTOXICITY [None]
  - HYPERHIDROSIS [None]
  - IRRITABLE BOWEL SYNDROME [None]
  - JAUNDICE [None]
  - NAUSEA [None]
  - PLEURAL EFFUSION [None]
  - PYREXIA [None]
  - VISION BLURRED [None]
  - VOMITING [None]
